FAERS Safety Report 4643534-7 (Version None)
Quarter: 2005Q2

REPORT INFORMATION
  Report Type: 
  Country: None (occurrence: None)
  Receive Date: 20050425
  Receipt Date: 20050413
  Transmission Date: 20051028
  Serious: Yes (Death)
  Sender: FDA-Public Use
  Company Number: US-JNJFOC-20041206229

PATIENT
  Sex: Male
  Weight: 78.93 kg

DRUGS (1)
  1. REMICADE [Suspect]
     Indication: DRUG USE FOR UNKNOWN INDICATION
     Dosage: LAST INFLIXIMAB DOSE
     Route: 042

REACTIONS (1)
  - CEREBROVASCULAR ACCIDENT [None]
